FAERS Safety Report 19022359 (Version 4)
Quarter: 2022Q3

REPORT INFORMATION
  Report Type: Spontaneous
  Country: DE (occurrence: DE)
  Receive Date: 20210318
  Receipt Date: 20220714
  Transmission Date: 20221027
  Serious: Yes (Other)
  Sender: FDA-Public Use
  Company Number: DE-EMA-DD-20210303-AGRAHARI_P-131803

PATIENT
  Age: 57 Year
  Sex: Male

DRUGS (51)
  1. EFAVIRENZ [Suspect]
     Active Substance: EFAVIRENZ
     Indication: HIV infection
     Dosage: UNK
     Route: 048
  2. DORAVIRINE [Suspect]
     Active Substance: DORAVIRINE
     Indication: HIV infection
     Dosage: UNK
     Route: 065
  3. RALTEGRAVIR POTASSIUM [Suspect]
     Active Substance: RALTEGRAVIR POTASSIUM
     Indication: HIV infection
     Dosage: UNK
     Route: 065
  4. ZIDOVUDINE [Suspect]
     Active Substance: ZIDOVUDINE
     Indication: HIV infection
     Dosage: UNK
     Route: 065
  5. ZIDOVUDINE [Suspect]
     Active Substance: ZIDOVUDINE
     Dosage: UNK
  6. ZIDOVUDINE [Suspect]
     Active Substance: ZIDOVUDINE
     Dosage: UNK
  7. TENOFOVIR DISOPROXIL FUMARATE [Suspect]
     Active Substance: TENOFOVIR DISOPROXIL FUMARATE
     Indication: HIV infection
     Dosage: UNK
     Route: 048
  8. TENOFOVIR DISOPROXIL FUMARATE [Suspect]
     Active Substance: TENOFOVIR DISOPROXIL FUMARATE
     Dosage: UNK
  9. EMTRICITABINE [Suspect]
     Active Substance: EMTRICITABINE
     Indication: HIV infection
     Dosage: UNK
     Route: 065
  10. EMTRICITABINE [Suspect]
     Active Substance: EMTRICITABINE
     Dosage: UNK
  11. NEVIRAPINE [Suspect]
     Active Substance: NEVIRAPINE
     Indication: HIV infection
     Dosage: UNK
     Route: 065
  12. NEVIRAPINE [Suspect]
     Active Substance: NEVIRAPINE
     Dosage: UNK
  13. RITONAVIR [Suspect]
     Active Substance: RITONAVIR
     Indication: HIV infection
     Dosage: UNK
     Route: 065
  14. RITONAVIR [Suspect]
     Active Substance: RITONAVIR
     Dosage: UNK
  15. DOLUTEGRAVIR [Suspect]
     Active Substance: DOLUTEGRAVIR
     Indication: HIV infection
     Dosage: UNK, BID
     Route: 048
  16. DOLUTEGRAVIR [Suspect]
     Active Substance: DOLUTEGRAVIR
     Dosage: UNK, BID
  17. MARAVIROC [Suspect]
     Active Substance: MARAVIROC
     Indication: HIV infection
     Dosage: UNK
     Route: 065
  18. MARAVIROC [Suspect]
     Active Substance: MARAVIROC
     Dosage: UNK
  19. AMPRENAVIR [Suspect]
     Active Substance: AMPRENAVIR
     Indication: HIV infection
     Dosage: UNK
     Route: 065
  20. AMPRENAVIR [Suspect]
     Active Substance: AMPRENAVIR
     Dosage: UNK
  21. AMPRENAVIR [Suspect]
     Active Substance: AMPRENAVIR
     Dosage: UNK
  22. LAMIVUDINE [Suspect]
     Active Substance: LAMIVUDINE
     Indication: HIV infection
     Dosage: UNK
     Route: 065
  23. BICTEGRAVIR [Suspect]
     Active Substance: BICTEGRAVIR
     Indication: HIV infection
     Dosage: UNK
     Route: 065
  24. BICTEGRAVIR [Suspect]
     Active Substance: BICTEGRAVIR
     Dosage: UNK
  25. BICTEGRAVIR [Suspect]
     Active Substance: BICTEGRAVIR
     Dosage: UNK
  26. DARUNAVIR [Suspect]
     Active Substance: DARUNAVIR
     Indication: HIV infection
     Dosage: UNK
     Route: 048
  27. DARUNAVIR [Suspect]
     Active Substance: DARUNAVIR
     Dosage: UNK
  28. ELVITEGRAVIR [Suspect]
     Active Substance: ELVITEGRAVIR
     Indication: HIV infection
     Dosage: UNK
     Route: 065
  29. ELVITEGRAVIR [Suspect]
     Active Substance: ELVITEGRAVIR
     Dosage: UNK
  30. STAVUDINE [Suspect]
     Active Substance: STAVUDINE
     Indication: HIV infection
     Dosage: UNK
     Route: 065
  31. STAVUDINE [Suspect]
     Active Substance: STAVUDINE
     Dosage: UNK
  32. LOPINAVIR [Suspect]
     Active Substance: LOPINAVIR
     Indication: HIV infection
     Dosage: UNK
     Route: 065
  33. LOPINAVIR [Suspect]
     Active Substance: LOPINAVIR
     Dosage: UNK
  34. RILPIVIRINE [Suspect]
     Active Substance: RILPIVIRINE
     Indication: HIV infection
     Dosage: UNK
     Route: 065
  35. RILPIVIRINE [Suspect]
     Active Substance: RILPIVIRINE
     Dosage: UNK
  36. ATAZANAVIR [Suspect]
     Active Substance: ATAZANAVIR
     Indication: HIV infection
     Dosage: UNK
     Route: 065
  37. ATAZANAVIR [Suspect]
     Active Substance: ATAZANAVIR
     Dosage: UNK
  38. TENOFOVIR ALAFENAMIDE FUMARATE [Suspect]
     Active Substance: TENOFOVIR ALAFENAMIDE FUMARATE
     Indication: HIV infection
     Dosage: UNK
     Route: 065
  39. ETRAVIRINE [Suspect]
     Active Substance: ETRAVIRINE
     Indication: HIV infection
     Dosage: UNK
     Route: 065
  40. ABACAVIR [Suspect]
     Active Substance: ABACAVIR
     Indication: HIV infection
     Dosage: UNK
     Route: 065
  41. ABACAVIR [Suspect]
     Active Substance: ABACAVIR
     Dosage: UNK
  42. ABACAVIR [Suspect]
     Active Substance: ABACAVIR
     Dosage: UNK
  43. ATAZANAVIR\RITONAVIR [Suspect]
     Active Substance: ATAZANAVIR\RITONAVIR
     Indication: HIV infection
     Dosage: UNK
  44. ATAZANAVIR\RITONAVIR [Suspect]
     Active Substance: ATAZANAVIR\RITONAVIR
     Dosage: UNK
  45. ATAZANAVIR\RITONAVIR [Suspect]
     Active Substance: ATAZANAVIR\RITONAVIR
     Dosage: UNK
  46. FOSAMPRENAVIR [Suspect]
     Active Substance: FOSAMPRENAVIR
     Indication: HIV infection
     Dosage: UNK
  47. FOSAMPRENAVIR [Suspect]
     Active Substance: FOSAMPRENAVIR
     Dosage: UNK
  48. FOSAMPRENAVIR [Suspect]
     Active Substance: FOSAMPRENAVIR
     Dosage: UNK
  49. RALTEGRAVIR [Suspect]
     Active Substance: RALTEGRAVIR
     Indication: HIV infection
     Dosage: UNK
  50. RALTEGRAVIR [Suspect]
     Active Substance: RALTEGRAVIR
     Dosage: UNK
  51. RALTEGRAVIR [Suspect]
     Active Substance: RALTEGRAVIR
     Dosage: UNK

REACTIONS (1)
  - Drug resistance [Unknown]
